FAERS Safety Report 10370438 (Version 4)
Quarter: 2015Q1

REPORT INFORMATION
  Report Type: Spontaneous
  Country: US (occurrence: None)
  Receive Date: 20140805
  Receipt Date: 20150310
  Transmission Date: 20150720
  Serious: Yes (Hospitalization)
  Sender: FDA-Public Use
  Company Number: US-H14001-14-00333

PATIENT
  Age: 83 Year
  Sex: Male

DRUGS (11)
  1. TAMSULOSIN (TAMSULOSIN) [Concomitant]
     Active Substance: TAMSULOSIN
  2. ALOXI (PALONOSETRON HYDROCHLORIDE) [Concomitant]
     Indication: PLASMA CELL MYELOMA
  3. ACYCLOVIR (ACICLOVIR) (ACICLOVIR) [Concomitant]
     Active Substance: ACYCLOVIR
  4. MORPHINE (MORPHINE) [Concomitant]
  5. KYPROLIS [Suspect]
     Active Substance: CARFILZOMIB
     Indication: PLASMA CELL MYELOMA
     Dosage: 54 MG, INTRAVENOUS (NOT OTHERWISE SPECIFIED)
     Route: 042
     Dates: start: 20131223, end: 20140124
  6. ACETAMINOPHEN (PARACETAMOL) [Concomitant]
     Active Substance: ACETAMINOPHEN
  7. WARFARIN (WARFARIN) [Concomitant]
     Active Substance: WARFARIN
  8. DEXAMETHASONE SODIUM PHOSPHATE. [Suspect]
     Active Substance: DEXAMETHASONE SODIUM PHOSPHATE
     Indication: PLASMA CELL MYELOMA
     Dosage: 40 MG INTRAVENOUS (NOT OTHERWISE SPECIFIED)
     Route: 042
     Dates: start: 20131223, end: 20140124
  9. ALLOPURINOL (ALLOPURINOL) [Concomitant]
     Active Substance: ALLOPURINOL
  10. MV (VITAMINS NOS) [Concomitant]
  11. ZOLEDRONIC ACID. [Concomitant]
     Active Substance: ZOLEDRONIC ACID

REACTIONS (4)
  - Gait disturbance [None]
  - Mental status changes [None]
  - Acute kidney injury [None]
  - Plasma cell myeloma [None]

NARRATIVE: CASE EVENT DATE: 20140128
